FAERS Safety Report 23414028 (Version 1)
Quarter: 2024Q1

REPORT INFORMATION
  Report Type: Report from Study
  Country: MX (occurrence: MX)
  Receive Date: 20240117
  Receipt Date: 20240117
  Transmission Date: 20240410
  Serious: Yes (Death, Hospitalization)
  Sender: FDA-Public Use
  Company Number: MX-BIOGEN-2024BI01245739

PATIENT
  Sex: Female
  Weight: 60 kg

DRUGS (1)
  1. TYSABRI [Suspect]
     Active Substance: NATALIZUMAB
     Indication: Multiple sclerosis
     Dosage: 1 INTRAVENOUS INFUSION OF 300 MG OF TYSABRI (NATALIZUMAB) EVERY 28 DAYS
     Route: 050
     Dates: start: 20230203, end: 202308

REACTIONS (2)
  - Renal failure [Fatal]
  - Bacterial infection [Fatal]
